FAERS Safety Report 9635680 (Version 3)
Quarter: 2014Q1

REPORT INFORMATION
  Report Type: Spontaneous
  Country: US (occurrence: US)
  Receive Date: 20131021
  Receipt Date: 20140120
  Transmission Date: 20141002
  Serious: Yes (Other)
  Sender: FDA-Public Use
  Company Number: US-GLAXOSMITHKLINE-A1045940A

PATIENT
  Age: 7 Year
  Sex: Female

DRUGS (2)
  1. VERAMYST [Suspect]
     Indication: PRODUCT USED FOR UNKNOWN INDICATION
     Dosage: 2SPR PER DAY
     Route: 045
  2. VENTOLIN [Concomitant]

REACTIONS (2)
  - Choking [Unknown]
  - Product quality issue [Unknown]
